FAERS Safety Report 23689252 (Version 1)
Quarter: 2024Q1

REPORT INFORMATION
  Report Type: Spontaneous
  Country: ES (occurrence: ES)
  Receive Date: 20240330
  Receipt Date: 20240330
  Transmission Date: 20240409
  Serious: Yes (Other)
  Sender: FDA-Public Use
  Company Number: None

PATIENT
  Age: 63 Year
  Sex: Female

DRUGS (19)
  1. GEMCITABINE [Suspect]
     Active Substance: GEMCITABINE
     Indication: Haemophagocytic lymphohistiocytosis
     Route: 042
     Dates: end: 20231122
  2. GEMCITABINE [Suspect]
     Active Substance: GEMCITABINE
     Indication: Angiocentric lymphoma
     Route: 042
     Dates: start: 20231226, end: 20231226
  3. ERTAPENEM [Suspect]
     Active Substance: ERTAPENEM
     Indication: Haemophagocytic lymphohistiocytosis
     Route: 042
     Dates: start: 20231010, end: 20231013
  4. ERTAPENEM [Suspect]
     Active Substance: ERTAPENEM
     Indication: Angiocentric lymphoma
  5. ACETAMINOPHEN [Suspect]
     Active Substance: ACETAMINOPHEN
     Indication: Product used for unknown indication
     Route: 048
     Dates: start: 20230928, end: 20231010
  6. FLUCONAZOLE [Suspect]
     Active Substance: FLUCONAZOLE
     Indication: Haemophagocytic lymphohistiocytosis
     Dosage: 7 CAPSULES
     Route: 048
     Dates: end: 20231109
  7. FLUCONAZOLE [Suspect]
     Active Substance: FLUCONAZOLE
     Indication: Angiocentric lymphoma
  8. METHOTREXATE [Suspect]
     Active Substance: METHOTREXATE
     Indication: Haemophagocytic lymphohistiocytosis
     Route: 042
     Dates: end: 20231014
  9. METHOTREXATE [Suspect]
     Active Substance: METHOTREXATE
     Indication: Angiocentric lymphoma
  10. CISPLATIN [Suspect]
     Active Substance: CISPLATIN
     Indication: Haemophagocytic lymphohistiocytosis
     Route: 042
     Dates: end: 20231122
  11. CISPLATIN [Suspect]
     Active Substance: CISPLATIN
     Indication: Angiocentric lymphoma
  12. AMOXICILLIN\CLAVULANIC ACID [Suspect]
     Active Substance: AMOXICILLIN\CLAVULANIC ACID
     Indication: Haemophagocytic lymphohistiocytosis
     Route: 042
     Dates: start: 20230928, end: 20231009
  13. AMOXICILLIN\CLAVULANIC ACID [Suspect]
     Active Substance: AMOXICILLIN\CLAVULANIC ACID
     Indication: Angiocentric lymphoma
  14. FLUCONAZOLE [Suspect]
     Active Substance: FLUCONAZOLE
     Indication: Angiocentric lymphoma
     Route: 042
     Dates: start: 20231012, end: 20231014
  15. FLUCONAZOLE [Suspect]
     Active Substance: FLUCONAZOLE
     Indication: Haemophagocytic lymphohistiocytosis
  16. IFOSFAMIDE [Suspect]
     Active Substance: IFOSFAMIDE
     Indication: Haemophagocytic lymphohistiocytosis
     Route: 042
     Dates: end: 20231017
  17. IFOSFAMIDE [Suspect]
     Active Substance: IFOSFAMIDE
     Indication: Angiocentric lymphoma
  18. ETOPOSIDE [Suspect]
     Active Substance: ETOPOSIDE
     Indication: Angiocentric lymphoma
     Route: 042
     Dates: end: 20231017
  19. ETOPOSIDE [Suspect]
     Active Substance: ETOPOSIDE
     Indication: Haemophagocytic lymphohistiocytosis

REACTIONS (5)
  - Mixed liver injury [Recovered/Resolved]
  - Hyperbilirubinaemia [Recovered/Resolved]
  - Hyperbilirubinaemia [Recovered/Resolved]
  - Mixed liver injury [Recovered/Resolved]
  - Coagulopathy [Recovered/Resolved]

NARRATIVE: CASE EVENT DATE: 20231013
